FAERS Safety Report 10531309 (Version 2)
Quarter: 2014Q4

REPORT INFORMATION
  Report Type: Spontaneous
  Country: CN (occurrence: CN)
  Receive Date: 20141021
  Receipt Date: 20141027
  Transmission Date: 20150529
  Serious: Yes (Hospitalization, Other)
  Sender: FDA-Public Use
  Company Number: CN-PFIZER INC-2014285748

PATIENT
  Age: 87 Year
  Sex: Male
  Weight: 50 kg

DRUGS (3)
  1. AZITHROMYCIN [Suspect]
     Active Substance: AZITHROMYCIN ANHYDROUS
     Dosage: 0.5 G, 1X/DAY
     Route: 041
     Dates: start: 20140527, end: 20140527
  2. VITAMIN B6 [Concomitant]
     Active Substance: PYRIDOXINE HYDROCHLORIDE
     Indication: ADVERSE REACTION
     Dosage: 0.2 G, 1X/DAY
     Route: 041
     Dates: start: 20140527, end: 20140527
  3. POTASSIUM CHLORIDE. [Concomitant]
     Active Substance: POTASSIUM CHLORIDE
     Indication: MINERAL SUPPLEMENTATION
     Dosage: 0.5 G, 1X/DAY
     Route: 041
     Dates: start: 20140527, end: 20140527

REACTIONS (2)
  - Seizure [Recovered/Resolved]
  - Dyspnoea [Recovered/Resolved]

NARRATIVE: CASE EVENT DATE: 20140527
